FAERS Safety Report 12711328 (Version 2)
Quarter: 2016Q4

REPORT INFORMATION
  Report Type: Report from Study
  Country: FR (occurrence: FR)
  Receive Date: 20160902
  Receipt Date: 20161027
  Transmission Date: 20170207
  Serious: Yes (Other)
  Sender: FDA-Public Use
  Company Number: FR-ROCHE-1824639

PATIENT

DRUGS (2)
  1. ALTEPLASE [Suspect]
     Active Substance: ALTEPLASE
     Dosage: REMAINING 90% OF 0.9 MG/KG OVER 60 MIN.
     Route: 041
  2. ALTEPLASE [Suspect]
     Active Substance: ALTEPLASE
     Indication: ISCHAEMIC STROKE
     Dosage: INITIAL BOLUS OF 10% OF 0.9 MG/KG
     Route: 040

REACTIONS (1)
  - Coma [Unknown]
